FAERS Safety Report 5759029-3 (Version None)
Quarter: 2008Q2

REPORT INFORMATION
  Report Type: 
  Country: None (occurrence: None)
  Receive Date: 20080604
  Receipt Date: 20080421
  Transmission Date: 20081010
  Serious: Yes (Life-Threatening, Hospitalization)
  Sender: FDA-Public Use
  Company Number: GB-SANOFI-SYNTHELABO-F01200701732

PATIENT
  Sex: Male

DRUGS (3)
  1. CETUXIMAB [Suspect]
     Route: 041
     Dates: start: 20071003, end: 20071003
  2. CAPECITABINE [Suspect]
     Dosage: 1000 MG/M2 TWICE DAILY ORALLY ON D1-14 EVERY 3 WEEKS
     Route: 048
     Dates: start: 20070613, end: 20071023
  3. OXALIPLATIN [Suspect]
     Indication: COLORECTAL CANCER METASTATIC
     Route: 041
     Dates: start: 20071003, end: 20071003

REACTIONS (1)
  - CEREBROVASCULAR ACCIDENT [None]
